FAERS Safety Report 14227648 (Version 1)
Quarter: 2017Q4

REPORT INFORMATION
  Report Type: Spontaneous
  Country: US (occurrence: US)
  Receive Date: 20171127
  Receipt Date: 20171127
  Transmission Date: 20180321
  Serious: Yes (Hospitalization)
  Sender: FDA-Public Use
  Company Number: US-PFIZER INC-2017452953

PATIENT
  Age: 52 Year
  Sex: Female

DRUGS (1)
  1. VFEND [Suspect]
     Active Substance: VORICONAZOLE
     Indication: PYELONEPHRITIS FUNGAL
     Dosage: 200 MG, 2X/DAY
     Route: 048
     Dates: start: 20170918

REACTIONS (3)
  - Fungaemia [Unknown]
  - Sepsis [Unknown]
  - Product use in unapproved indication [Unknown]
